FAERS Safety Report 9585489 (Version 1)
Quarter: 2013Q4

REPORT INFORMATION
  Report Type: Spontaneous
  Country: US (occurrence: US)
  Receive Date: 20131003
  Receipt Date: 20131003
  Transmission Date: 20140711
  Serious: No
  Sender: FDA-Public Use
  Company Number: US-B.I. PHARMACEUTICALS,INC./RIDGEFIELD-2013-BI-30007BP

PATIENT
  Age: 76 Year
  Sex: Male
  Weight: 90 kg

DRUGS (15)
  1. COMBIVENT [Suspect]
     Indication: CHRONIC OBSTRUCTIVE PULMONARY DISEASE
     Dosage: DOSE PER APPLICATION: 20 MCG / 100 MCG; DAILY DOSE: 80 MCG / 400 MCG
     Route: 055
     Dates: start: 20130808, end: 20130819
  2. DULERA [Concomitant]
     Indication: CHRONIC OBSTRUCTIVE PULMONARY DISEASE
     Dosage: DOSE PER APPLICATION: 1 INHALATION; DAILY DOSE: 2 INHALATION
     Route: 055
  3. VENTOLIN [Concomitant]
     Indication: CHRONIC OBSTRUCTIVE PULMONARY DISEASE
     Dosage: DOSE PER APPLICATION: 1 INHALATION;
  4. WELLBUTRIN [Concomitant]
     Indication: DEPRESSION
     Dosage: 150 MG
     Route: 048
  5. CELEXA [Concomitant]
     Indication: DEPRESSION
     Dosage: 40 MG
     Route: 048
  6. PLAVIX [Concomitant]
     Indication: CARDIAC DISORDER
     Dosage: 75 MG
     Route: 048
  7. CARDIZEM CD [Concomitant]
     Indication: HYPERTENSION
     Dosage: 360 MG
     Route: 048
  8. LASIX [Concomitant]
     Route: 048
  9. LORTAB [Concomitant]
     Indication: BACK PAIN
     Dosage: (TABLET) STRENGTH: 10 MG / 500 MG; DAILY DOSE: 40 MG / 2000 MG
     Route: 048
  10. LISINIPRIL [Concomitant]
     Indication: HYPERTENSION
     Dosage: 40 MG
     Route: 048
  11. ANTIVERT [Concomitant]
     Indication: DIZZINESS
     Route: 048
  12. POTASSIUM 40 MEQ [Concomitant]
     Dosage: FORMULATION: CAPLET
     Route: 048
  13. SIMVASTATIN [Concomitant]
     Indication: BLOOD CHOLESTEROL INCREASED
     Dosage: 40 MG
     Route: 048
  14. TESTOSTERONE INJECTION ONCE/MONTH [Concomitant]
     Indication: BLOOD TESTOSTERONE DECREASED
     Route: 030
  15. TRAZODONE [Concomitant]
     Indication: SLEEP DISORDER
     Dosage: 200 MG
     Route: 048

REACTIONS (1)
  - Hypertension [Recovered/Resolved]
